FAERS Safety Report 20041110 (Version 1)
Quarter: 2021Q4

REPORT INFORMATION
  Report Type: Spontaneous
  Country: US (occurrence: US)
  Receive Date: 20211107
  Receipt Date: 20211107
  Transmission Date: 20220303
  Serious: No
  Sender: FDA-Public Use
  Company Number: US-009507513-2110USA004508

PATIENT
  Sex: Male

DRUGS (1)
  1. KEYTRUDA [Suspect]
     Active Substance: PEMBROLIZUMAB
     Indication: Lung carcinoma cell type unspecified stage IV
     Dosage: IV
     Route: 042
     Dates: start: 2015

REACTIONS (2)
  - Loss of therapeutic response [Unknown]
  - Neoplasm [Unknown]

NARRATIVE: CASE EVENT DATE: 20210101
